FAERS Safety Report 9228346 (Version 2)
Quarter: 2013Q2

REPORT INFORMATION
  Report Type: Report from Study
  Country: DE (occurrence: DE)
  Receive Date: 20130412
  Receipt Date: 20130520
  Transmission Date: 20140414
  Serious: Yes (Death, Other)
  Sender: FDA-Public Use
  Company Number: DE-ROCHE-1211398

PATIENT
  Sex: 0

DRUGS (4)
  1. ALTEPLASE [Suspect]
     Indication: BASILAR ARTERY OCCLUSION
     Route: 013
  2. ABCIXIMAB [Suspect]
     Indication: BASILAR ARTERY OCCLUSION
     Dosage: NR , INITIAL BOLUS: 0.25 MGKG BW
     Route: 040
  3. ABCIXIMAB [Suspect]
     Dosage: 0.125 MCG/KG/MIN
     Route: 042
  4. HEPARIN [Suspect]
     Indication: BASILAR ARTERY OCCLUSION
     Dosage: 5000 U, 500 IU/HOUR
     Route: 065

REACTIONS (3)
  - Death [Fatal]
  - Cerebral haemorrhage [Fatal]
  - Drug ineffective [Unknown]
